FAERS Safety Report 7700522-1 (Version None)
Quarter: 2011Q3

REPORT INFORMATION
  Report Type: 
  Country: None (occurrence: None)
  Receive Date: 20110822
  Receipt Date: 20110811
  Transmission Date: 20111222
  Serious: Yes (Hospitalization)
  Sender: FDA-Public Use
  Company Number: FR-PERRIGO-11FR006602

PATIENT
  Age: 17 Year
  Sex: Female

DRUGS (2)
  1. TRIMEBUTINE [Suspect]
     Indication: INTENTIONAL OVERDOSE
     Dosage: 600 MG, SINGLE
     Route: 048
  2. LOPERAMIDE HYDROCHLORIDE [Suspect]
     Indication: INTENTIONAL OVERDOSE
     Dosage: 18 MG, SINGLE
     Route: 048

REACTIONS (5)
  - MULTIPLE DRUG OVERDOSE INTENTIONAL [None]
  - BLOOD AMYLASE INCREASED [None]
  - ABDOMINAL PAIN UPPER [None]
  - PANCREATITIS ACUTE [None]
  - LIPASE INCREASED [None]
